FAERS Safety Report 7048098-9 (Version None)
Quarter: 2010Q4

REPORT INFORMATION
  Report Type: 
  Country: None (occurrence: None)
  Receive Date: 20101015
  Receipt Date: 20101012
  Transmission Date: 20110411
  Serious: Yes (Other)
  Sender: FDA-Public Use
  Company Number: US-WYE-H16931410

PATIENT
  Sex: Male
  Weight: 83.99 kg

DRUGS (3)
  1. EFFEXOR XR [Suspect]
     Route: 048
  2. COLCHICINE [Concomitant]
     Indication: PERICARDITIS
     Dosage: UNKNOWN
  3. PREDNISONE [Concomitant]
     Dosage: UNKNOWN

REACTIONS (4)
  - ANXIETY [None]
  - DEPRESSION [None]
  - DRUG INEFFECTIVE [None]
  - PERICARDITIS [None]
